FAERS Safety Report 15258659 (Version 1)
Quarter: 2018Q3

REPORT INFORMATION
  Report Type: Report from Study
  Country: PL (occurrence: PL)
  Receive Date: 20180809
  Receipt Date: 20180809
  Transmission Date: 20181010
  Serious: Yes (Other)
  Sender: FDA-Public Use
  Company Number: PL-TEVA-2018-PL-936712

PATIENT
  Age: 60 Year
  Sex: Male
  Weight: 116 kg

DRUGS (5)
  1. TACROLIMUS. [Suspect]
     Active Substance: TACROLIMUS
     Indication: RENAL TRANSPLANT
     Dosage: 1 MILLIGRAM DAILY;
     Route: 065
     Dates: start: 20170915
  2. MYCOPHENOLATE MOFETIL. [Concomitant]
     Active Substance: MYCOPHENOLATE MOFETIL
     Indication: IMMUNOSUPPRESSION
     Dosage: 1500 (UNKNOWN UNIT), ONCE DAILY
     Route: 065
     Dates: start: 20160206, end: 20170914
  3. METHYLPREDNISOLONE. [Concomitant]
     Active Substance: METHYLPREDNISOLONE
     Indication: IMMUNOSUPPRESSION
     Dosage: 4 (UNKNOWN UNIT), ONCE DAILY
     Route: 065
     Dates: start: 20140825
  4. TACROLIMUS. [Suspect]
     Active Substance: TACROLIMUS
     Dosage: 3 MILLIGRAM DAILY;
     Route: 065
     Dates: start: 20161213
  5. TACROLIMUS. [Suspect]
     Active Substance: TACROLIMUS
     Dosage: 2 MILLIGRAM DAILY;
     Route: 065
     Dates: start: 20160510

REACTIONS (1)
  - Renal neoplasm [Recovered/Resolved with Sequelae]

NARRATIVE: CASE EVENT DATE: 201707
